FAERS Safety Report 5710106-2 (Version None)
Quarter: 2008Q2

REPORT INFORMATION
  Report Type: 
  Country: None (occurrence: None)
  Receive Date: 20080418
  Receipt Date: 20071119
  Transmission Date: 20081010
  Serious: No
  Sender: FDA-Public Use
  Company Number: US-ASTRAZENECA-2007UW26671

PATIENT
  Sex: Male

DRUGS (2)
  1. TOPROL-XL [Suspect]
     Indication: HYPERTENSION
     Route: 048
     Dates: start: 20030101
  2. VITAMINS [Concomitant]

REACTIONS (1)
  - SKIN DISCOLOURATION [None]
